FAERS Safety Report 24602498 (Version 2)
Quarter: 2024Q4

REPORT INFORMATION
  Report Type: Spontaneous
  Country: US (occurrence: US)
  Receive Date: 20241111
  Receipt Date: 20241026
  Transmission Date: 20250115
  Serious: No
  Sender: TARO
  Company Number: US-TARO PHARMACEUTICALS USA INC.-2024TAR01218

PATIENT

DRUGS (1)
  1. ADAPALENE [Suspect]
     Active Substance: ADAPALENE
     Indication: Acne
     Dosage: UNK, DAILY
     Route: 061
     Dates: start: 202401, end: 202407

REACTIONS (3)
  - Skin exfoliation [Recovering/Resolving]
  - Acne [Recovering/Resolving]
  - Dry skin [Recovered/Resolved]

NARRATIVE: CASE EVENT DATE: 20240201
